FAERS Safety Report 9447841 (Version 1)
Quarter: 2013Q3

REPORT INFORMATION
  Report Type: Report from Study
  Country: FR (occurrence: FR)
  Receive Date: 20130808
  Receipt Date: 20130808
  Transmission Date: 20140515
  Serious: Yes (Hospitalization, Other)
  Sender: FDA-Public Use
  Company Number: FR-AMGEN-FRANI2013054827

PATIENT
  Age: 67 Year
  Sex: Female
  Weight: 72 kg

DRUGS (3)
  1. PEGFILGRASTIM [Suspect]
     Indication: PROPHYLAXIS
     Dosage: UNK
     Route: 058
     Dates: start: 20130305
  2. FLUOROURACIL [Concomitant]
     Indication: FEBRILE NEUTROPENIA
     Dosage: 925 MG, Q3WK
  3. LOXEN [Concomitant]
     Indication: HYPERTENSION
     Dosage: 10 MG, QD

REACTIONS (1)
  - Febrile neutropenia [Recovered/Resolved]
